FAERS Safety Report 6179712-8 (Version None)
Quarter: 2009Q2

REPORT INFORMATION
  Report Type: 
  Country: None (occurrence: None)
  Receive Date: 20090505
  Receipt Date: 20090429
  Transmission Date: 20091009
  Serious: Yes (Hospitalization)
  Sender: FDA-Public Use
  Company Number: US-ELI_LILLY_AND_COMPANY-US200904006931

PATIENT
  Sex: Male

DRUGS (2)
  1. HUMALOG [Suspect]
     Dosage: 5 U, 3/D
     Dates: start: 20090422
  2. LANTUS [Concomitant]
     Indication: DIABETES MELLITUS
     Dosage: 15 U, EACH EVENING

REACTIONS (2)
  - ASTHENIA [None]
  - DIZZINESS [None]
